FAERS Safety Report 4782271-5 (Version None)
Quarter: 2005Q3

REPORT INFORMATION
  Report Type: 
  Country: None (occurrence: None)
  Receive Date: 20050929
  Receipt Date: 20050801
  Transmission Date: 20060218
  Serious: Yes (Death, Hospitalization)
  Sender: FDA-Public Use
  Company Number: DE-BOEHRINGER INGELHEIM PHARMACEUTICALS, INC.-2005-DE-02978DE

PATIENT
  Sex: Male
  Weight: 66.5 kg

DRUGS (3)
  1. TIPRANAVIR + RITONAVIR CO-ADMIN [Suspect]
     Indication: HIV INFECTION
     Dosage: 1000 MG TIPRANAVIR + 400 MG RITRONAVIR
     Route: 048
     Dates: start: 20050616, end: 20050701
  2. COMBIVIR [Concomitant]
     Indication: HIV INFECTION
     Dosage: 600 MG + 300 MG
     Route: 048
     Dates: start: 20050616, end: 20050701
  3. FUZEON [Concomitant]
     Indication: HIV INFECTION
     Route: 058
     Dates: start: 20050616, end: 20050701

REACTIONS (9)
  - COLITIS [None]
  - GASTRITIS [None]
  - GASTROENTERITIS CRYPTOSPORIDIAL [None]
  - NEPHRITIS INTERSTITIAL [None]
  - PANCYTOPENIA [None]
  - PERICARDIAL EFFUSION [None]
  - RENAL FAILURE [None]
  - SEPSIS [None]
  - VISCERAL LEISHMANIASIS [None]
